FAERS Safety Report 4456951-5 (Version None)
Quarter: 2004Q3

REPORT INFORMATION
  Report Type: 
  Country: None (occurrence: None)
  Receive Date: 20040921
  Receipt Date: 20040908
  Transmission Date: 20050211
  Serious: Yes (Hospitalization)
  Sender: FDA-Public Use
  Company Number: 2003167981JP

PATIENT
  Age: 6 Year
  Sex: Male
  Weight: 16.3 kg

DRUGS (8)
  1. GENOTROPIN (SOMATROPIN) POWDER, STERILE [Suspect]
     Indication: PRADER-WILLI SYNDROME
     Dosage: 3.6 MG, WEEKLY, SUBCUTANEOUS
     Route: 058
     Dates: start: 20020911
  2. VICILLIN-S [Concomitant]
  3. SEVOFRANE (SEVOFLURANE) [Concomitant]
  4. FENTANYL CITRATE [Concomitant]
  5. VAGOSTIGMIN POWD (NEOSTIGMINE BROMIDE) [Concomitant]
  6. PROPOFOL [Concomitant]
  7. ATROPINE [Concomitant]
  8. DROPERIDOL [Concomitant]

REACTIONS (4)
  - ADENOIDAL HYPERTROPHY [None]
  - DISEASE PROGRESSION [None]
  - RESPIRATORY DISORDER [None]
  - SLEEP APNOEA SYNDROME [None]
